FAERS Safety Report 23575189 (Version 1)
Quarter: 2024Q1

REPORT INFORMATION
  Report Type: Spontaneous
  Country: US (occurrence: None)
  Receive Date: 20240227
  Receipt Date: 20240227
  Transmission Date: 20240409
  Serious: Yes (Other)
  Sender: FDA-Public Use
  Company Number: None

PATIENT
  Age: 71 Year
  Sex: Female
  Weight: 81 kg

DRUGS (6)
  1. CLENPIQ [Suspect]
     Active Substance: ANHYDROUS CITRIC ACID\MAGNESIUM OXIDE\SODIUM PICOSULFATE
     Indication: Colonoscopy
     Dosage: OTHER QUANTITY : 350 ML;?FREQUENCY : TWICE A DAY;?
     Route: 048
     Dates: start: 20231019, end: 20231020
  2. ATENOLOL [Concomitant]
     Active Substance: ATENOLOL
  3. ALLOPURINOL [Concomitant]
     Active Substance: ALLOPURINOL
  4. LEVOTHYROXINE [Concomitant]
     Active Substance: LEVOTHYROXINE\LEVOTHYROXINE SODIUM
  5. XARELTO [Concomitant]
     Active Substance: RIVAROXABAN
  6. MINOXIDIL [Concomitant]
     Active Substance: MINOXIDIL

REACTIONS (6)
  - Retching [None]
  - Nausea [None]
  - Drug ineffective [None]
  - Product preparation issue [None]
  - Product quality issue [None]
  - Economic problem [None]

NARRATIVE: CASE EVENT DATE: 20231019
